FAERS Safety Report 8180070-8 (Version None)
Quarter: 2012Q1

REPORT INFORMATION
  Report Type: 
  Country: None (occurrence: None)
  Receive Date: 20120302
  Receipt Date: 20120302
  Transmission Date: 20120608
  Serious: No
  Sender: FDA-Public Use
  Company Number: None

PATIENT
  Sex: Female
  Weight: 58.059 kg

DRUGS (1)
  1. CLONAZEPAM [Suspect]
     Indication: ANXIETY
     Dosage: ONE TABLET
     Route: 048
     Dates: start: 20100305, end: 20120210

REACTIONS (4)
  - PAIN [None]
  - DYSURIA [None]
  - CYSTITIS NONINFECTIVE [None]
  - URETHRITIS [None]
